FAERS Safety Report 8921111 (Version 1)
Quarter: 2012Q4

REPORT INFORMATION
  Report Type: 
  Country: DE (occurrence: DE)
  Receive Date: 20121121
  Receipt Date: 20121121
  Transmission Date: 20130627
  Serious: Yes (Congenital Anomaly)
  Sender: FDA-Public Use
  Company Number: DE-TEVA-370006GER

PATIENT
  Sex: Male
  Weight: 3.86 kg

DRUGS (4)
  1. PAROXETINE [Suspect]
     Route: 064
  2. GYNVITAL GRAVIDA [Concomitant]
     Route: 064
  3. NASIC [Concomitant]
     Route: 064
  4. RENNIE [Concomitant]
     Route: 064

REACTIONS (2)
  - Foot deformity [Unknown]
  - Cryptorchism [Unknown]
